FAERS Safety Report 9563630 (Version 1)
Quarter: 2013Q1

REPORT INFORMATION
  Report Type: Spontaneous
  Country: US (occurrence: None)
  Receive Date: 20121227
  Receipt Date: 20121227
  Transmission Date: 20140127
  Serious: Yes (Other)
  Sender: FDA-Public Use
  Company Number: PHEH2012US003061

PATIENT
  Age: 68 Year
  Sex: Female
  Weight: 77 kg

DRUGS (10)
  1. EXJADE [Suspect]
     Indication: SERUM FERRITIN INCREASED
     Dates: start: 20111207, end: 20120131
  2. ZOLOFT (SERTRALINE HYDROCHLORIDE) [Concomitant]
  3. PREMARIN (ESTROGENS CONJUGATED) [Concomitant]
  4. AMBIEN (ZOLPIDEM TARTRATE) [Concomitant]
  5. CALCIUM CITRATE W/WITAMIN D NOS (CALCIUM CITRATE, VITAMIN D NOS) [Concomitant]
  6. MULTIPLE VITAMINS (ASCORBIC ACID, ERGOCALCIFEROL, FOLIC ACID, RETINOL, TOCOPHEROL, VITAMIN B NOS) [Concomitant]
  7. CYANOCOBALAMIN (CYANOCOBALAMIN) [Concomitant]
  8. VITAMIN D (ERGOCALCIFEROL) [Concomitant]
  9. PROMETHAZINE HYDROCHLORIDE (PROMETHAZINE HYDROCHLORIDE) [Concomitant]
  10. PRILOSEC [Concomitant]

REACTIONS (10)
  - Blood creatinine increased [None]
  - Blood calcium decreased [None]
  - Blood glucose increased [None]
  - Blood urea increased [None]
  - Blood immunoglobulin M decreased [None]
  - Mean cell volume increased [None]
  - Mean cell haemoglobin increased [None]
  - Serum ferritin increased [None]
  - Red blood cell count decreased [None]
  - Lymphocyte count decreased [None]
